FAERS Safety Report 6406416-6 (Version None)
Quarter: 2009Q4

REPORT INFORMATION
  Report Type: 
  Country: None (occurrence: None)
  Receive Date: 20091014
  Receipt Date: 20091002
  Transmission Date: 20100525
  Serious: Yes (Other)
  Sender: FDA-Public Use
  Company Number: TRP_06477_2009

PATIENT
  Age: 61 Year
  Sex: Female

DRUGS (4)
  1. RIBASPHERE [Suspect]
     Indication: HEPATITIS C
     Dosage: DF, 600 MG
     Dates: start: 20090624, end: 20090101
  2. RIBASPHERE [Suspect]
     Indication: HEPATITIS C
     Dosage: DF, 600 MG
     Dates: start: 20090101
  3. PEG-INTRON [Suspect]
     Indication: HEPATITIS C
     Dosage: 0.5 ML SUBCUTANEOUS, 72 MCG SUBCUTANEOUS
     Route: 058
     Dates: start: 20090624, end: 20090101
  4. PEG-INTRON [Suspect]
     Indication: HEPATITIS C
     Dosage: 0.5 ML SUBCUTANEOUS, 72 MCG SUBCUTANEOUS
     Route: 058
     Dates: start: 20090101

REACTIONS (20)
  - ANXIETY [None]
  - CHEST PAIN [None]
  - CONDITION AGGRAVATED [None]
  - DIZZINESS [None]
  - DRY EYE [None]
  - DRY MOUTH [None]
  - DYSPNOEA [None]
  - ECZEMA [None]
  - EXTRASYSTOLES [None]
  - FATIGUE [None]
  - HAEMOGLOBIN DECREASED [None]
  - HEART RATE IRREGULAR [None]
  - MYOCARDIAL INFARCTION [None]
  - NASAL DRYNESS [None]
  - NEUTROPHIL COUNT DECREASED [None]
  - OPTIC ISCHAEMIC NEUROPATHY [None]
  - PALPITATIONS [None]
  - PULMONARY CONGESTION [None]
  - RASH [None]
  - WHITE BLOOD CELL COUNT DECREASED [None]
